FAERS Safety Report 7570512-0 (Version None)
Quarter: 2011Q2

REPORT INFORMATION
  Report Type: 
  Country: None (occurrence: None)
  Receive Date: 20110624
  Receipt Date: 20110616
  Transmission Date: 20111010
  Serious: Yes (Hospitalization)
  Sender: FDA-Public Use
  Company Number: GB-TEVA-287115ISR

PATIENT
  Age: 76 Year
  Sex: Male

DRUGS (7)
  1. DICLOFENAC SODIUM [Suspect]
     Dates: start: 20060127
  2. CLOZAPINE [Suspect]
     Route: 048
     Dates: start: 20060127
  3. SENNA [Suspect]
     Indication: CONSTIPATION
     Route: 048
  4. TEMAZEPAM [Suspect]
     Indication: INSOMNIA
     Route: 048
  5. LANSOPRAZOLE [Suspect]
     Dates: start: 20060127
  6. CLOZAPINE [Suspect]
     Indication: SCHIZOPHRENIA
     Route: 048
     Dates: start: 20051110
  7. OMEPRAZOLE [Concomitant]
     Indication: GASTROOESOPHAGEAL REFLUX DISEASE
     Dosage: 40 MILLIGRAM;
     Route: 048

REACTIONS (3)
  - ACCIDENTAL OVERDOSE [None]
  - CONFUSIONAL STATE [None]
  - MEDICATION ERROR [None]
